FAERS Safety Report 9216943 (Version 1)
Quarter: 2013Q2

REPORT INFORMATION
  Report Type: Spontaneous
  Country: US (occurrence: US)
  Receive Date: 20130408
  Receipt Date: 20130408
  Transmission Date: 20140414
  Serious: Yes (Other)
  Sender: FDA-Public Use
  Company Number: US-GLAXOSMITHKLINE-A1013254A

PATIENT
  Age: 36 Year
  Sex: Male
  Weight: 102.7 kg

DRUGS (2)
  1. POTIGA [Suspect]
     Indication: CONVULSION
     Dosage: 100MG UNKNOWN
     Route: 048
     Dates: start: 20120524, end: 201212
  2. NO CONCURRENT MEDICATION [Concomitant]

REACTIONS (2)
  - Urinary retention [Recovered/Resolved]
  - Bladder catheterisation [Recovered/Resolved]
